FAERS Safety Report 6419427-1 (Version None)
Quarter: 2009Q4

REPORT INFORMATION
  Report Type: 
  Country: None (occurrence: None)
  Receive Date: 20091029
  Receipt Date: 20091027
  Transmission Date: 20100525
  Serious: Yes (Hospitalization)
  Sender: FDA-Public Use
  Company Number: FR-WYE-G04724809

PATIENT
  Sex: Male
  Weight: 61.2 kg

DRUGS (7)
  1. TORISEL [Suspect]
     Indication: METASTATIC RENAL CELL CARCINOMA
     Route: 042
     Dates: start: 20090325, end: 20091014
  2. ASPEGIC 1000 [Concomitant]
     Route: 048
  3. FENOFIBRATE [Concomitant]
     Route: 048
  4. OMEPRAZOLE [Concomitant]
     Route: 048
  5. SPIRONOLACTONE [Concomitant]
     Route: 048
  6. AVASTIN [Suspect]
     Indication: METASTATIC RENAL CELL CARCINOMA
     Route: 042
     Dates: start: 20090325, end: 20090909
  7. TENORMIN [Concomitant]
     Route: 048

REACTIONS (1)
  - OROANTRAL FISTULA [None]
